FAERS Safety Report 7079489-8 (Version None)
Quarter: 2010Q4

REPORT INFORMATION
  Report Type: 
  Country: None (occurrence: None)
  Receive Date: 20101102
  Receipt Date: 20101025
  Transmission Date: 20110411
  Serious: Yes (Life-Threatening, Hospitalization, Other)
  Sender: FDA-Public Use
  Company Number: FR-GENZYME-POMP-1001172

PATIENT

DRUGS (3)
  1. MYOZYME [Suspect]
     Indication: GLYCOGEN STORAGE DISEASE TYPE II
     Dosage: 20 MG/KG, Q2W
     Route: 042
     Dates: start: 20091031
  2. LEVOCARNIL [Concomitant]
     Indication: MUSCULAR WEAKNESS
     Dosage: 3 G, QD
     Dates: start: 20101001
  3. PARACETAMOL [Concomitant]
     Indication: PAIN
     Dosage: UNK
     Dates: start: 20050627

REACTIONS (3)
  - BRADYCARDIA [None]
  - BUNDLE BRANCH BLOCK [None]
  - SYNCOPE [None]
